FAERS Safety Report 5084042-1 (Version None)
Quarter: 2006Q3

REPORT INFORMATION
  Report Type: 
  Country: None (occurrence: None)
  Receive Date: 20060819
  Receipt Date: 20051129
  Transmission Date: 20061208
  Serious: Yes (Hospitalization)
  Sender: FDA-Public Use
  Company Number: ES-BOEHRINGER INGELHEIM PHARMACEUTICALS, INC.-2006-ES-00004ES

PATIENT
  Sex: Male

DRUGS (3)
  1. VIRAMUNE [Suspect]
     Indication: HIV INFECTION
     Route: 048
     Dates: start: 20020506, end: 20050511
  2. D4T [Suspect]
     Indication: HIV INFECTION
     Route: 048
     Dates: start: 20020506, end: 20050511
  3. DDI [Suspect]
     Indication: HIV INFECTION
     Route: 048
     Dates: start: 20020506, end: 20050511

REACTIONS (3)
  - HYPERLACTACIDAEMIA [None]
  - METABOLIC ACIDOSIS [None]
  - TRANSAMINASES INCREASED [None]
